FAERS Safety Report 6941176-1 (Version None)
Quarter: 2010Q3

REPORT INFORMATION
  Report Type: 
  Country: None (occurrence: None)
  Receive Date: 20100825
  Receipt Date: 20100608
  Transmission Date: 20110219
  Serious: No
  Sender: FDA-Public Use
  Company Number: US-BRISTOL-MYERS SQUIBB COMPANY-15139645

PATIENT
  Age: 48 Year
  Sex: Female

DRUGS (2)
  1. ONGLYZA [Suspect]
     Dates: start: 20100428
  2. LEVOTHYROXINE [Concomitant]

REACTIONS (1)
  - RASH [None]
